FAERS Safety Report 17721922 (Version 1)
Quarter: 2020Q2

REPORT INFORMATION
  Report Type: Spontaneous
  Country: US (occurrence: US)
  Receive Date: 20200429
  Receipt Date: 20200429
  Transmission Date: 20200714
  Serious: Yes (Other)
  Sender: FDA-Public Use
  Company Number: US-SUN PHARMACEUTICAL INDUSTRIES LTD-2020R1-244626

PATIENT
  Sex: Female

DRUGS (1)
  1. DEXMETHYLPHENIDATE [Suspect]
     Active Substance: DEXMETHYLPHENIDATE HYDROCHLORIDE
     Indication: PRODUCT USED FOR UNKNOWN INDICATION
     Dosage: 10 MGX60. 2 PER DAY FOR ADHD
     Route: 065

REACTIONS (6)
  - Product design issue [Unknown]
  - Palpitations [Unknown]
  - Headache [Unknown]
  - Visual impairment [Unknown]
  - Pain [Unknown]
  - Product quality issue [Unknown]
